FAERS Safety Report 6594751-0 (Version None)
Quarter: 2010Q1

REPORT INFORMATION
  Report Type: 
  Country: None (occurrence: None)
  Receive Date: 20100222
  Receipt Date: 20100213
  Transmission Date: 20100710
  Serious: Yes (Hospitalization, Other)
  Sender: FDA-Public Use
  Company Number: US-PFIZER INC-2009290079

PATIENT
  Age: 19 Year
  Sex: Female
  Weight: 53.5 kg

DRUGS (4)
  1. PIROXICAM [Suspect]
     Indication: JUVENILE ARTHRITIS
     Dosage: 20 MG, 1X/DAY
     Route: 048
     Dates: start: 20050101, end: 20090909
  2. *ETANERCEPT [Suspect]
     Indication: JUVENILE ARTHRITIS
     Dosage: 25 MG, TWICE WEEKLY
     Route: 058
     Dates: start: 20051201
  3. ZYRTEC [Concomitant]
     Dosage: 10 MG, QD PRN
     Route: 048
  4. ADVAIR DISKUS 100/50 [Concomitant]
     Dosage: 250/50 QD, PRN
     Route: 055
     Dates: start: 20080201

REACTIONS (2)
  - BACTERAEMIA [None]
  - PHARYNGITIS STREPTOCOCCAL [None]
